FAERS Safety Report 5077958-3 (Version None)
Quarter: 2006Q3

REPORT INFORMATION
  Report Type: 
  Country: None (occurrence: None)
  Receive Date: 20060808
  Receipt Date: 20060728
  Transmission Date: 20061208
  Serious: Yes (Death)
  Sender: FDA-Public Use
  Company Number: GXKR2006GB04366

PATIENT
  Age: 55 Year
  Sex: Male

DRUGS (3)
  1. CO-AMOXICLAV [Suspect]
     Indication: HAEMATOMA
     Dosage: ORAL; 1 DF, TID, ORAL
     Route: 048
     Dates: start: 20060215, end: 20060220
  2. CO-AMOXICLAV [Suspect]
     Indication: HAEMATOMA
     Dosage: ORAL; 1 DF, TID, ORAL
     Route: 048
     Dates: start: 20060215, end: 20060220
  3. CO-AMOXICLAV (NGX) (AMOXICILLIN, CLAVULANATE) [Suspect]
     Indication: URINARY TRACT INFECTION
     Dosage: ORAL; 1 DF,TID, ORAL
     Route: 048
     Dates: start: 20060312, end: 20060321

REACTIONS (3)
  - HEPATIC FAILURE [None]
  - JAUNDICE [None]
  - SEPSIS [None]
